FAERS Safety Report 6435068-4 (Version None)
Quarter: 2009Q4

REPORT INFORMATION
  Report Type: 
  Country: None (occurrence: None)
  Receive Date: 20091110
  Receipt Date: 20091028
  Transmission Date: 20100525
  Serious: Yes (Hospitalization, Other)
  Sender: FDA-Public Use
  Company Number: JP-PFIZER INC-2009291602

PATIENT
  Age: 83 Year
  Sex: Female
  Weight: 46 kg

DRUGS (8)
  1. SPIRONOLACTONE [Suspect]
     Dosage: 25 MG,DAILY
     Route: 048
  2. CIBENZOLINE SUCCINATE [Interacting]
     Dosage: 200 MG, DAILY
     Route: 048
     Dates: start: 20080212
  3. FUROSEMIDE [Interacting]
     Dosage: 40 MG, DAILY
     Route: 048
  4. FAMOTIDINE [Concomitant]
     Dosage: 20 MG, UNK
     Route: 048
  5. METILDIGOXIN [Concomitant]
     Dosage: 0.5 MG, UNK
     Route: 048
  6. ALLOPURINOL [Concomitant]
     Dosage: 100 MG, UNK
     Route: 048
  7. REBAMIPIDE [Concomitant]
     Dosage: 300 MG, UNK
     Route: 048
  8. WARFARIN SODIUM [Concomitant]
     Dosage: 2 MG, UNK
     Route: 048

REACTIONS (4)
  - ALTERED STATE OF CONSCIOUSNESS [None]
  - DRUG LEVEL INCREASED [None]
  - HYPOGLYCAEMIA [None]
  - RENAL IMPAIRMENT [None]
